FAERS Safety Report 12109436 (Version 1)
Quarter: 2016Q1

REPORT INFORMATION
  Report Type: Spontaneous
  Country: US (occurrence: US)
  Receive Date: 20160224
  Receipt Date: 20160224
  Transmission Date: 20160526
  Serious: No
  Sender: FDA-Public Use
  Company Number: US-PFIZER INC-2016050433

PATIENT
  Age: 83 Year
  Sex: Female

DRUGS (2)
  1. IODINE [Suspect]
     Active Substance: IODINE
  2. CLINDAMYCIN HCL [Suspect]
     Active Substance: CLINDAMYCIN HYDROCHLORIDE

REACTIONS (1)
  - Drug hypersensitivity [Unknown]
